FAERS Safety Report 22600167 (Version 1)
Quarter: 2023Q2

REPORT INFORMATION
  Report Type: Other
  Country: CN (occurrence: None)
  Receive Date: 20230614
  Receipt Date: 20230614
  Transmission Date: 20230721
  Serious: Yes (Other)
  Sender: FDA-Public Use
  Company Number: CN-ROCHE-3366131

PATIENT
  Sex: Male

DRUGS (4)
  1. BEVACIZUMAB [Suspect]
     Active Substance: BEVACIZUMAB
     Indication: Colon cancer metastatic
     Route: 065
     Dates: start: 202003, end: 202007
  2. CAPECITABINE [Suspect]
     Active Substance: CAPECITABINE
     Indication: Colon cancer metastatic
     Route: 065
     Dates: start: 202003, end: 202007
  3. IRINOTECAN [Suspect]
     Active Substance: IRINOTECAN
     Indication: Colon cancer metastatic
     Route: 065
     Dates: start: 202003, end: 202007
  4. TORIPALIMAB [Concomitant]
     Active Substance: TORIPALIMAB

REACTIONS (3)
  - Disease progression [Recovered/Resolved]
  - Neutropenia [Unknown]
  - Gastrointestinal disorder [Unknown]
